FAERS Safety Report 25594090 (Version 1)
Quarter: 2025Q3

REPORT INFORMATION
  Report Type: Spontaneous
  Country: AU (occurrence: AU)
  Receive Date: 20250723
  Receipt Date: 20250723
  Transmission Date: 20251021
  Serious: Yes (Other)
  Sender: STRIDES
  Company Number: AU-STRIDES ARCOLAB LIMITED-2025SP008951

PATIENT
  Age: 14 Year
  Sex: Male

DRUGS (3)
  1. SEVELAMER CARBONATE [Suspect]
     Active Substance: SEVELAMER CARBONATE
     Indication: Hyperphosphataemia
     Route: 065
  2. SEVELAMER CARBONATE [Suspect]
     Active Substance: SEVELAMER CARBONATE
     Indication: Calcinosis
  3. ACETAZOLAMIDE [Suspect]
     Active Substance: ACETAZOLAMIDE
     Indication: Hyperphosphaturia
     Route: 065

REACTIONS (3)
  - Disease progression [Unknown]
  - Drug effective for unapproved indication [Unknown]
  - Off label use [Unknown]
